FAERS Safety Report 6828468-1 (Version None)
Quarter: 2010Q3

REPORT INFORMATION
  Report Type: 
  Country: None (occurrence: None)
  Receive Date: 20100709
  Receipt Date: 20070209
  Transmission Date: 20110219
  Serious: No
  Sender: FDA-Public Use
  Company Number: US-PFIZER INC-2007011817

PATIENT
  Sex: Male
  Weight: 72.57 kg

DRUGS (5)
  1. CHANTIX [Suspect]
     Indication: SMOKING CESSATION THERAPY
     Route: 048
     Dates: start: 20070101
  2. NORVASC [Concomitant]
  3. QUINAPRIL [Concomitant]
  4. MOBIC [Concomitant]
  5. VALIUM [Concomitant]

REACTIONS (1)
  - FLATULENCE [None]
